FAERS Safety Report 5233458-9 (Version None)
Quarter: 2007Q1

REPORT INFORMATION
  Report Type: 
  Country: None (occurrence: None)
  Receive Date: 20070208
  Receipt Date: 20070201
  Transmission Date: 20070707
  Serious: Yes (Death, Hospitalization)
  Sender: FDA-Public Use
  Company Number: US-SANOFI-SYNTHELABO-F03200700002

PATIENT
  Sex: Male
  Weight: 54.4 kg

DRUGS (15)
  1. OXALIPLATIN [Suspect]
     Indication: SQUAMOUS CELL CARCINOMA
     Route: 042
     Dates: start: 20061208, end: 20061208
  2. DOCETAXEL [Suspect]
     Indication: SQUAMOUS CELL CARCINOMA
     Route: 042
     Dates: start: 20061208, end: 20061208
  3. AL/MG ES/VIS LIDO/DIPHEN [Concomitant]
     Dosage: UNK
     Route: 048
  4. CIPROFLOXACIN HCL [Concomitant]
     Route: 048
  5. FORMOTEROL FUMARATE [Concomitant]
     Dosage: UNK
     Route: 055
  6. FERROUS SULFATE TAB [Concomitant]
     Dosage: UNK
     Route: 048
  7. CYCLOBENZAPRINE HCL [Concomitant]
     Dosage: UNK
     Route: 048
  8. LEVALBUTEROL TARTRATE [Concomitant]
     Dosage: UNK
     Route: 055
  9. LEVOTHYROXINE SODIUM [Concomitant]
     Dosage: UNK
     Route: 048
  10. METFORMIN HCL [Concomitant]
     Dosage: UNK
     Route: 048
  11. METOCLOPRAMIDE HCL [Concomitant]
     Dosage: UNK
     Route: 048
  12. METOPROLOL TARTRATE [Concomitant]
     Dosage: UNK
     Route: 048
  13. ENSURE PLUS [Concomitant]
     Dosage: UNK
     Route: 048
  14. THEOPHYLLINE [Concomitant]
     Dosage: UNK
     Route: 048
  15. TIOTROPIUM [Concomitant]
     Dosage: UNK
     Route: 055

REACTIONS (1)
  - DEATH [None]
